FAERS Safety Report 11090111 (Version 1)
Quarter: 2015Q2

REPORT INFORMATION
  Report Type: Report from Study
  Country: JP (occurrence: JP)
  Receive Date: 20150505
  Receipt Date: 20150505
  Transmission Date: 20150821
  Serious: Yes (Death, Life-Threatening, Hospitalization)
  Sender: FDA-Public Use
  Company Number: JP-SA-2015SA058322

PATIENT
  Age: 34 Year
  Sex: Male
  Weight: 51.5 kg

DRUGS (27)
  1. PROGRAF [Suspect]
     Active Substance: TACROLIMUS\TACROLIMUS ANHYDROUS
     Indication: ACUTE MYELOID LEUKAEMIA
     Route: 065
     Dates: start: 20121221, end: 20121228
  2. PROGRAF [Suspect]
     Active Substance: TACROLIMUS\TACROLIMUS ANHYDROUS
     Indication: ACUTE MYELOID LEUKAEMIA
     Route: 065
     Dates: start: 20130118, end: 20130302
  3. BEZATOL - SLOW RELEASE [Concomitant]
     Active Substance: BEZAFIBRATE
     Indication: GRAFT VERSUS HOST DISEASE
     Dates: start: 20121018, end: 20130109
  4. ITRIZOLE [Concomitant]
     Active Substance: ITRACONAZOLE
     Indication: INFECTION PROPHYLAXIS
     Dates: end: 20130206
  5. NEOMALLERMIN [Concomitant]
     Indication: ALLERGIC TRANSFUSION REACTION
     Dates: start: 20121222, end: 20130302
  6. BAKTAR [Concomitant]
     Active Substance: SULFAMETHOXAZOLE\TRIMETHOPRIM
     Indication: INFECTION PROPHYLAXIS
     Dates: start: 20121206, end: 20121209
  7. FRAGMIN [Concomitant]
     Active Substance: DALTEPARIN SODIUM
     Indication: THROMBOSIS PROPHYLAXIS
     Dates: start: 20130211, end: 20130224
  8. NEO-MINOPHAGEN C [Concomitant]
     Active Substance: AMMONIUM GLYCYRRHIZATE
     Dates: start: 20130107, end: 20130301
  9. REMICADE [Concomitant]
     Active Substance: INFLIXIMAB
     Dates: start: 20130115, end: 20130205
  10. ZOVIRAX [Concomitant]
     Active Substance: ACYCLOVIR
     Indication: INFECTION PROPHYLAXIS
     Dates: end: 20130302
  11. PREDNISOLONE. [Suspect]
     Active Substance: PREDNISOLONE
     Indication: ACUTE MYELOID LEUKAEMIA
     Route: 065
     Dates: start: 20121216, end: 20130302
  12. ALLELOCK [Concomitant]
     Active Substance: OLOPATADINE HYDROCHLORIDE
     Indication: GRAFT VERSUS HOST DISEASE
     Dates: end: 20130123
  13. CELLCEPT [Suspect]
     Active Substance: MYCOPHENOLATE MOFETIL\MYCOPHENOLATE MOFETIL HYDROCHLORIDE
     Indication: GRAFT VERSUS HOST DISEASE
     Route: 065
     Dates: start: 20121225, end: 20130109
  14. PREDONINE [Suspect]
     Active Substance: PREDNISOLONE\PREDNISOLONE ACETATE\PREDNISOLONE SODIUM SUCCINATE
     Indication: PROPHYLAXIS
     Route: 065
     Dates: start: 20121207, end: 20121208
  15. PREDNISOLONE. [Suspect]
     Active Substance: PREDNISOLONE
     Indication: ACUTE MYELOID LEUKAEMIA
     Route: 065
     Dates: end: 20121216
  16. U-PAN [Concomitant]
     Active Substance: LORAZEPAM
     Indication: DEPRESSION
     Dates: end: 20130116
  17. LENDORMIN [Concomitant]
     Active Substance: BROTIZOLAM
     Indication: DEPRESSION
     Dates: end: 20130117
  18. POLAPREZINC [Concomitant]
     Active Substance: POLAPREZINC
     Indication: PROPHYLAXIS AGAINST GASTROINTESTINAL ULCER
     Dates: end: 20130302
  19. TAKEPRON OD [Concomitant]
     Active Substance: LANSOPRAZOLE
     Indication: PROPHYLAXIS AGAINST GASTROINTESTINAL ULCER
     Dates: end: 20130302
  20. PAXIL CR [Concomitant]
     Active Substance: PAROXETINE HYDROCHLORIDE
     Indication: DEPRESSION
     Dates: end: 20130227
  21. URSO [Concomitant]
     Active Substance: URSODIOL
     Indication: GRAFT VERSUS HOST DISEASE
     Dates: start: 20120427, end: 20130302
  22. LIPITOR [Concomitant]
     Active Substance: ATORVASTATIN CALCIUM
     Indication: GRAFT VERSUS HOST DISEASE
     Dates: end: 20130109
  23. LOPEMIN [Concomitant]
     Active Substance: LOPERAMIDE HYDROCHLORIDE
     Indication: DIARRHOEA
     Dates: start: 20120223, end: 20130114
  24. SOLU-MEDROL [Concomitant]
     Active Substance: METHYLPREDNISOLONE SODIUM SUCCINATE
     Indication: PROPHYLAXIS
     Dates: start: 20121205, end: 20121206
  25. PROGRAF [Suspect]
     Active Substance: TACROLIMUS\TACROLIMUS ANHYDROUS
     Indication: ACUTE MYELOID LEUKAEMIA
     Route: 065
     Dates: start: 20121228, end: 20130118
  26. THYMOGLOBULINE [Suspect]
     Active Substance: LAPINE T-LYMPHOCYTE IMMUNE GLOBULIN
     Indication: GRAFT VERSUS HOST DISEASE
     Route: 041
     Dates: start: 20121203, end: 20121204
  27. NEORAL [Concomitant]
     Active Substance: CYCLOSPORINE
     Dates: end: 20121220

REACTIONS (14)
  - Hepatic function abnormal [Not Recovered/Not Resolved]
  - Oedema peripheral [Recovering/Resolving]
  - Staphylococcal bacteraemia [Recovering/Resolving]
  - Allergic transfusion reaction [Recovering/Resolving]
  - Deep vein thrombosis [Unknown]
  - Acute myeloid leukaemia recurrent [Fatal]
  - Thrombotic microangiopathy [Recovering/Resolving]
  - Renal impairment [Not Recovered/Not Resolved]
  - Tremor [Recovering/Resolving]
  - Hyperkalaemia [Not Recovered/Not Resolved]
  - Hypoglycaemia [Recovered/Resolved]
  - Pulmonary congestion [Not Recovered/Not Resolved]
  - Graft versus host disease [Fatal]
  - Cellulitis [Recovering/Resolving]

NARRATIVE: CASE EVENT DATE: 20121205
